FAERS Safety Report 8478443-9 (Version None)
Quarter: 2012Q2

REPORT INFORMATION
  Report Type: 
  Country: None (occurrence: None)
  Receive Date: 20120629
  Receipt Date: 20120620
  Transmission Date: 20120825
  Serious: Yes (Other)
  Sender: FDA-Public Use
  Company Number: BR-JNJFOC-20120611818

PATIENT
  Sex: Male
  Weight: 91 kg

DRUGS (12)
  1. REMICADE [Suspect]
     Indication: OSTEOARTHRITIS
     Route: 042
     Dates: start: 20050901
  2. REMICADE [Suspect]
     Route: 042
     Dates: start: 20050901
  3. PREDNISOLONE [Concomitant]
     Indication: OSTEOARTHRITIS
     Route: 048
     Dates: start: 20050601
  4. CALCIUM CARBONATE [Concomitant]
     Indication: OSTEOARTHRITIS
     Route: 048
     Dates: start: 20050601
  5. CALCIUM CARBONATE [Concomitant]
     Indication: RHEUMATOID ARTHRITIS
     Route: 048
     Dates: start: 20050601
  6. REMICADE [Suspect]
     Indication: RHEUMATOID ARTHRITIS
     Route: 042
     Dates: start: 20111202, end: 20111202
  7. VITAMIN D [Concomitant]
     Indication: OSTEOARTHRITIS
     Route: 048
     Dates: start: 20050601
  8. REMICADE [Suspect]
     Route: 042
     Dates: start: 20111202, end: 20111202
  9. PREDNISOLONE [Concomitant]
     Indication: RHEUMATOID ARTHRITIS
     Route: 048
     Dates: start: 20050601
  10. VITAMIN D [Concomitant]
     Indication: RHEUMATOID ARTHRITIS
     Route: 048
     Dates: start: 20050601
  11. RANITIDINE [Concomitant]
     Indication: RHEUMATOID ARTHRITIS
     Route: 048
     Dates: start: 20050601
  12. RANITIDINE [Concomitant]
     Indication: OSTEOARTHRITIS
     Route: 048
     Dates: start: 20050601

REACTIONS (2)
  - GASTRIC BYPASS [None]
  - METASTATIC NEOPLASM [None]
